FAERS Safety Report 11258377 (Version 1)
Quarter: 2015Q3

REPORT INFORMATION
  Report Type: Spontaneous
  Country: US (occurrence: None)
  Receive Date: 20150709
  Receipt Date: 20150709
  Transmission Date: 20151125
  Serious: Yes (Hospitalization)
  Sender: FDA-Public Use
  Company Number: None

PATIENT
  Sex: Female
  Weight: 78 kg

DRUGS (2)
  1. CLOZAPINE 100MG TEVA [Suspect]
     Active Substance: CLOZAPINE
     Indication: PSYCHOTIC DISORDER
     Dosage: Q AM
     Route: 048
     Dates: start: 20150317
  2. CLOZAPINE 200MG TEVA [Suspect]
     Active Substance: CLOZAPINE
     Indication: PSYCHOTIC DISORDER
     Dosage: Q HS
     Route: 048
     Dates: start: 20150317

REACTIONS (2)
  - Faecaloma [None]
  - Ileus [None]

NARRATIVE: CASE EVENT DATE: 20150413
